FAERS Safety Report 15990717 (Version 1)
Quarter: 2019Q1

REPORT INFORMATION
  Report Type: Spontaneous
  Country: US (occurrence: US)
  Receive Date: 20190221
  Receipt Date: 20190221
  Transmission Date: 20190418
  Serious: Yes (Hospitalization)
  Sender: FDA-Public Use
  Company Number: None

PATIENT
  Age: 68 Year
  Sex: Female

DRUGS (1)
  1. IBRANCE [Suspect]
     Active Substance: PALBOCICLIB
     Indication: BREAST CANCER FEMALE
     Dosage: ?          OTHER FREQUENCY:PO FOR 21 DAYS;?
     Route: 048
     Dates: start: 20180425

REACTIONS (2)
  - Pulmonary oedema [None]
  - Diarrhoea [None]
